FAERS Safety Report 5536375-X (Version None)
Quarter: 2007Q4

REPORT INFORMATION
  Report Type: 
  Country: None (occurrence: None)
  Receive Date: 20071206
  Receipt Date: 20071128
  Transmission Date: 20080405
  Serious: Yes (Other)
  Sender: FDA-Public Use
  Company Number: US-PFIZER INC-2007100510

PATIENT
  Sex: Male

DRUGS (1)
  1. SUTENT [Suspect]

REACTIONS (7)
  - ANOREXIA [None]
  - DIARRHOEA [None]
  - JAUNDICE [None]
  - MOUTH ULCERATION [None]
  - NAUSEA [None]
  - RASH [None]
  - SKIN HAEMORRHAGE [None]
